FAERS Safety Report 10544340 (Version 1)
Quarter: 2014Q4

REPORT INFORMATION
  Report Type: Spontaneous
  Country: US (occurrence: None)
  Receive Date: 20141010
  Receipt Date: 20141010
  Transmission Date: 20150529
  Serious: Yes (Other)
  Sender: FDA-Public Use
  Company Number: 163-POMAL-14070117

PATIENT
  Age: 62 Year
  Sex: Male

DRUGS (1)
  1. POMALYST [Suspect]
     Active Substance: POMALIDOMIDE
     Indication: PLASMA CELL MYELOMA
     Route: 048
     Dates: start: 201406, end: 201406

REACTIONS (7)
  - Spinal pain [None]
  - Muscular weakness [None]
  - Back pain [None]
  - Pyrexia [None]
  - Abdominal distension [None]
  - Constipation [None]
  - Myalgia [None]

NARRATIVE: CASE EVENT DATE: 201406
